FAERS Safety Report 9678837 (Version 1)
Quarter: 2013Q4

REPORT INFORMATION
  Report Type: Spontaneous
  Country: US (occurrence: US)
  Receive Date: 20131108
  Receipt Date: 20131108
  Transmission Date: 20140711
  Serious: Yes (Death, Other)
  Sender: FDA-Public Use
  Company Number: US-TEVA-443307USA

PATIENT
  Age: 6 Month
  Sex: Male
  Weight: 8 kg

DRUGS (2)
  1. AZITHROMYCIN [Suspect]
     Indication: LUNG INFILTRATION
     Dosage: APPROXIMATELY 80% INFUSION OF A 500MG DOSE (62.5 MG/KG)
     Route: 041
  2. CEFTRIAXONE [Concomitant]
     Route: 042

REACTIONS (3)
  - Cardiac arrest [Fatal]
  - Bradycardia [Fatal]
  - Accidental overdose [Fatal]
